FAERS Safety Report 24379198 (Version 1)
Quarter: 2024Q3

REPORT INFORMATION
  Report Type: Spontaneous
  Country: US (occurrence: US)
  Receive Date: 20240930
  Receipt Date: 20240930
  Transmission Date: 20241017
  Serious: No
  Sender: BAYER
  Company Number: US-BAYER-2024A138147

PATIENT

DRUGS (1)
  1. MIRALAX [Suspect]
     Active Substance: POLYETHYLENE GLYCOL 3350
     Dosage: 1 TEASPOON A DAY DOSE  6 MONTHS TO A YEAR NOW
     Route: 048

REACTIONS (3)
  - Incorrect product administration duration [Unknown]
  - Fatigue [Unknown]
  - Dizziness [Unknown]
